FAERS Safety Report 26165760 (Version 1)
Quarter: 2025Q4

REPORT INFORMATION
  Report Type: Spontaneous
  Country: CA (occurrence: CA)
  Receive Date: 20251216
  Receipt Date: 20251216
  Transmission Date: 20260117
  Serious: Yes (Hospitalization, Other)
  Sender: BAUSCH AND LOMB
  Company Number: CA-BAUSCH-BH-2025-022348

PATIENT
  Age: 43 Year
  Sex: Male

DRUGS (2)
  1. RIFAXIMIN [Suspect]
     Active Substance: RIFAXIMIN
     Indication: Hepatic encephalopathy
     Route: 048
     Dates: start: 20251017, end: 2025
  2. RIFAXIMIN [Suspect]
     Active Substance: RIFAXIMIN
     Route: 048
     Dates: start: 202511

REACTIONS (10)
  - Ill-defined disorder [Recovering/Resolving]
  - Cholecystectomy [Unknown]
  - Crohn^s disease [Unknown]
  - Hepatic cirrhosis [Unknown]
  - Fluid retention [Unknown]
  - Bacterial infection [Unknown]
  - Abdominal hernia [Unknown]
  - Product use issue [Unknown]
  - Intentional product use issue [Unknown]
  - Underdose [Unknown]

NARRATIVE: CASE EVENT DATE: 20250101
